FAERS Safety Report 20847817 (Version 9)
Quarter: 2022Q4

REPORT INFORMATION
  Report Type: Report from Study
  Country: FR (occurrence: None)
  Receive Date: 20220519
  Receipt Date: 20221212
  Transmission Date: 20230112
  Serious: Yes (Hospitalization)
  Sender: FDA-Public Use
  Company Number: FR-ROCHE-3060622

PATIENT
  Age: 75 Year
  Sex: Male
  Weight: 83 kg

DRUGS (10)
  1. ATEZOLIZUMAB [Suspect]
     Active Substance: ATEZOLIZUMAB
     Indication: Pancreatic carcinoma metastatic
     Dosage: DATE OF MOST RECENT DOSE 29/MAR/2022
     Route: 041
     Dates: start: 20220301
  2. ATEZOLIZUMAB [Suspect]
     Active Substance: ATEZOLIZUMAB
     Indication: Neoplasm
  3. ELIQUIS [Concomitant]
     Active Substance: APIXABAN
     Indication: Pulmonary embolism
     Dosage: HEAT-SEALED BLISTER PACK 1 FILM-COATED TABLETS 1 TABLET PER DAY
     Route: 048
     Dates: start: 20220408, end: 20220504
  4. OXYCODONE [Concomitant]
     Active Substance: OXYCODONE
     Dosage: DAILY DOSE: 10 MG
     Route: 048
  5. INSULIN NOS [Concomitant]
     Active Substance: INSULIN NOS
  6. INSULIN NOS [Concomitant]
     Active Substance: INSULIN NOS
  7. INSULIN GLARGINE [Concomitant]
     Active Substance: INSULIN GLARGINE
     Dosage: 100 UNITS/ML SOLUTION FOR INJECTION IN A PRE-FILLED PEN 3 ML - 20 UNITS IN THE EVENING
     Route: 058
     Dates: start: 20220408, end: 20220504
  8. OXYCODONE HYDROCHLORIDE [Concomitant]
     Active Substance: OXYCODONE HYDROCHLORIDE
     Dosage: ORODISPERSIBLE TABLETS1 TO 6 TABLETS PER DAY, MAXIMUM OF 1 TABLET PER DOSE, TIME BETWEEN TWO DOSES 4
     Route: 048
     Dates: start: 20220408, end: 20220504
  9. DOLIPRANE [Concomitant]
     Active Substance: ACETAMINOPHEN
     Dosage: 2 CAPSULES IN THE MORNING, AT NOON AND IN THE EVENING IF NEEDED
     Route: 048
     Dates: start: 20220408, end: 20220504
  10. VOGALENE [Concomitant]
     Active Substance: METOPIMAZINE
     Dosage: 1 CAPSULE IN THE MORNING, AT NOON AND IN THE EVENING IF NEEDED, IF NAUSEA - UNTIL (INDETERMINATE)
     Route: 048
     Dates: start: 20220408

REACTIONS (3)
  - Asthenia [Not Recovered/Not Resolved]
  - Pyrexia [Recovered/Resolved]
  - Thrombocytopenia [Recovered/Resolved]

NARRATIVE: CASE EVENT DATE: 20220322
